FAERS Safety Report 6892166-9 (Version None)
Quarter: 2010Q3

REPORT INFORMATION
  Report Type: 
  Country: None (occurrence: None)
  Receive Date: 20100731
  Receipt Date: 20080214
  Transmission Date: 20110219
  Serious: No
  Sender: FDA-Public Use
  Company Number: US-PFIZER INC-2008014818

PATIENT
  Sex: Female
  Weight: 77.3 kg

DRUGS (4)
  1. GABAPENTIN [Suspect]
     Indication: BIPOLAR DISORDER
     Dates: end: 20080101
  2. BENICAR [Concomitant]
  3. HYDROCHLOROTHIAZIDE [Concomitant]
  4. METOPROLOL TARTRATE [Concomitant]

REACTIONS (1)
  - DRUG INEFFECTIVE [None]
